FAERS Safety Report 4888009-5 (Version None)
Quarter: 2006Q1

REPORT INFORMATION
  Report Type: 
  Country: None (occurrence: None)
  Receive Date: 20060123
  Receipt Date: 20051004
  Transmission Date: 20060701
  Serious: Yes (Hospitalization)
  Sender: FDA-Public Use
  Company Number: US-MERCK-0510USA03622

PATIENT
  Age: 66 Year
  Sex: Male
  Weight: 82 kg

DRUGS (5)
  1. CLARITIN [Concomitant]
     Indication: HYPERSENSITIVITY
     Route: 065
  2. VIOXX [Suspect]
     Indication: OSTEOARTHRITIS
     Route: 048
     Dates: start: 20010223, end: 20030109
  3. PROZAC [Concomitant]
     Indication: ANXIETY
     Route: 065
  4. PRILOSEC [Concomitant]
     Indication: DYSPEPSIA
     Route: 065
  5. ASPIRIN [Concomitant]
     Indication: PAIN
     Route: 065

REACTIONS (3)
  - CAROTID ARTERY STENOSIS [None]
  - CEREBROVASCULAR ACCIDENT [None]
  - HYPERTENSION [None]
